FAERS Safety Report 10024000 (Version 1)
Quarter: 2014Q1

REPORT INFORMATION
  Report Type: Spontaneous
  Country: US (occurrence: None)
  Receive Date: 20140319
  Receipt Date: 20140319
  Transmission Date: 20141002
  Serious: Yes (Life-Threatening, Hospitalization, Disabling)
  Sender: FDA-Public Use
  Company Number: None

PATIENT
  Age: 81 Year
  Sex: Female

DRUGS (9)
  1. ATORVASTATIN GENERIC FOR LIPITOR [Suspect]
     Indication: BLOOD CHOLESTEROL INCREASED
     Dosage: 30 PILLS 1-A-DAY BY MOUTH WITH WATHER
     Route: 048
     Dates: start: 20130228, end: 20130312
  2. ALLOPURINOL [Concomitant]
  3. METOPRUROLOL [Concomitant]
  4. BUMETANIDE [Concomitant]
  5. WARFARIN [Concomitant]
  6. AMLODIPINE [Concomitant]
  7. ZETIA [Concomitant]
  8. LOW DOSE ASPIRIN [Concomitant]
  9. OSTEO BI-FLEX [Concomitant]

REACTIONS (9)
  - Chromaturia [None]
  - Dysgeusia [None]
  - Poisoning [None]
  - Malaise [None]
  - Malaise [None]
  - Tremor [None]
  - Nausea [None]
  - Hepatic enzyme increased [None]
  - Parosmia [None]
